FAERS Safety Report 17925109 (Version 1)
Quarter: 2020Q2

REPORT INFORMATION
  Report Type: Spontaneous
  Country: US (occurrence: US)
  Receive Date: 20200622
  Receipt Date: 20200622
  Transmission Date: 20200714
  Serious: Yes (Death)
  Sender: FDA-Public Use
  Company Number: US-PFIZER INC-2020239829

PATIENT
  Age: 34 Year

DRUGS (2)
  1. LORAZEPAM. [Suspect]
     Active Substance: LORAZEPAM
     Indication: ALCOHOL POISONING
     Dosage: 2 MG
     Route: 030
     Dates: start: 2017
  2. LORAZEPAM. [Suspect]
     Active Substance: LORAZEPAM
     Indication: CONVULSIVE THRESHOLD LOWERED

REACTIONS (3)
  - Seizure [Fatal]
  - Expired product administered [Fatal]
  - Drug ineffective [Fatal]

NARRATIVE: CASE EVENT DATE: 2017
